FAERS Safety Report 8763433 (Version 3)
Quarter: 2012Q4

REPORT INFORMATION
  Report Type: 
  Country: JP (occurrence: JP)
  Receive Date: 20120831
  Receipt Date: 20121102
  Transmission Date: 20130627
  Serious: Yes (Hospitalization)
  Sender: FDA-Public Use
  Company Number: JP-009507513-1208JPN010208

PATIENT
  Age: 50 Year
  Sex: Female
  Weight: 57 kg

DRUGS (11)
  1. PEGINTRON [Suspect]
     Indication: HEPATITIS C
     Dosage: 1.5 Microgram per kilogram, qw
     Route: 058
     Dates: start: 20120705, end: 20120711
  2. PEGINTRON [Suspect]
     Dosage: 0.7 Microgram per kilogram, qw
     Route: 058
     Dates: start: 20120712, end: 20120815
  3. PEGINTRON [Suspect]
     Dosage: 1.5 Microgram per kilogram, qw
     Route: 058
     Dates: start: 20120913
  4. REBETOL [Suspect]
     Indication: HEPATITIS C
     Dosage: 600 mg, qd
     Route: 048
     Dates: start: 20120705, end: 20120808
  5. REBETOL [Suspect]
     Dosage: 400 mg, qd
     Route: 048
     Dates: start: 20120809, end: 20120812
  6. REBETOL [Suspect]
     Dosage: 600 mg,qd
     Route: 048
     Dates: start: 20120901
  7. TELAVIC [Suspect]
     Indication: HEPATITIS C
     Dosage: 2250 mg, qd
     Route: 048
     Dates: start: 20120705, end: 20120711
  8. TELAVIC [Suspect]
     Dosage: 1500 mg, qd
     Route: 048
     Dates: start: 20120712, end: 20120808
  9. GASMOTIN [Concomitant]
     Dosage: formulation: POR
     Route: 048
     Dates: start: 20120811, end: 20120818
  10. TAKEPRON [Concomitant]
     Dosage: formulation: POR
     Route: 048
     Dates: end: 20120816
  11. THYRADIN-S [Concomitant]
     Dosage: formulation: POR
     Route: 048
     Dates: end: 20120816

REACTIONS (2)
  - Drug eruption [Not Recovered/Not Resolved]
  - Erythema multiforme [Unknown]
